FAERS Safety Report 5360452-X (Version None)
Quarter: 2007Q2

REPORT INFORMATION
  Report Type: 
  Country: None (occurrence: None)
  Receive Date: 20070614
  Receipt Date: 20070531
  Transmission Date: 20071010
  Serious: Yes (Hospitalization)
  Sender: FDA-Public Use
  Company Number: 2007S1004913

PATIENT
  Age: 78 Year
  Sex: Female
  Weight: 55.4 kg

DRUGS (19)
  1. SU - 011, 248 (SUNITINIB MALATE) [Suspect]
     Indication: SQUAMOUS CELL CARCINOMA
     Dosage: 50 MG; DAILY;
     Dates: start: 20070221
  2. DIGITEK (DIGOXIN) TABLETS [Suspect]
  3. LEVOTHYROXINE SODIUM [Suspect]
  4. LISINOPRIL [Suspect]
  5. FOSAMAX [Suspect]
  6. HYDROCHLOROTHIAZIDE [Suspect]
  7. HYDROCODONE BITARTRATE [Suspect]
  8. ISOSORBIDE DINITRATE [Suspect]
  9. LIPITOR [Suspect]
  10. LORAZEPAM [Suspect]
  11. OMEPRAZOLE /00661202/ [Suspect]
  12. CORTISONE /00014602/ [Suspect]
     Dates: start: 20070219
  13. GLUCOSAMIN /00943601/ [Suspect]
  14. MULTIVITAMIN /02160401 [Suspect]
  15. GLYCEROL 2.6% [Suspect]
  16. OMEGA 3 [Suspect]
  17. BIOTENE /00203502/ [Suspect]
  18. OSCAL /00108001/ [Suspect]
  19. OASIS [Suspect]

REACTIONS (2)
  - CHOLECYSTITIS [None]
  - CHOLELITHIASIS [None]
